FAERS Safety Report 8996458 (Version 2)
Quarter: 2013Q1

REPORT INFORMATION
  Report Type: Spontaneous
  Country: US (occurrence: US)
  Receive Date: 20130104
  Receipt Date: 20130204
  Transmission Date: 20140127
  Serious: Yes (Other)
  Sender: FDA-Public Use
  Company Number: US-BIOGENIDEC-2012BI014609

PATIENT
  Age: 46 Year
  Sex: Female

DRUGS (4)
  1. AVONEX [Suspect]
     Indication: MULTIPLE SCLEROSIS
     Route: 030
     Dates: start: 20120215
  2. AVONEX [Suspect]
     Indication: MULTIPLE SCLEROSIS
     Route: 030
     Dates: start: 20120215
  3. DILANTIN [Concomitant]
     Indication: CONVULSION
  4. TOPAMAX [Concomitant]
     Indication: CONVULSION

REACTIONS (5)
  - Convulsion [Recovered/Resolved]
  - Blood potassium decreased [Recovered/Resolved]
  - Anticonvulsant drug level decreased [Recovered/Resolved]
  - Visual impairment [Unknown]
  - Chest pain [Recovered/Resolved]
